FAERS Safety Report 24269586 (Version 1)
Quarter: 2024Q3

REPORT INFORMATION
  Report Type: Spontaneous
  Country: ZA (occurrence: None)
  Receive Date: 20240830
  Receipt Date: 20240830
  Transmission Date: 20241017
  Serious: Yes (Other)
  Sender: ASTRAZENECA
  Company Number: 2024A195013

PATIENT
  Age: 90 Year
  Sex: Male

DRUGS (9)
  1. DAPAGLIFLOZIN PROPANEDIOL [Suspect]
     Active Substance: DAPAGLIFLOZIN PROPANEDIOL
     Indication: Diabetes mellitus
     Route: 048
  2. OXAZEPAM [Concomitant]
     Active Substance: OXAZEPAM
     Indication: Anxiety
  3. STILPANE [Concomitant]
     Indication: Pain
  4. LEVALBUTEROL HYDROCHLORIDE [Concomitant]
     Active Substance: LEVALBUTEROL HYDROCHLORIDE
     Indication: Asthma
  5. ENTIRO [Concomitant]
  6. SANDOZ CO-AMOXYCLAV 1000 MG [Concomitant]
  7. BE-TABS PREDNISONE 5 MG [Concomitant]
  8. BUDONEB 0.5 MG [Concomitant]
  9. MONTEFLO 10 MG [Concomitant]

REACTIONS (2)
  - Deafness [Unknown]
  - Urinary tract infection [Unknown]
